APPROVED DRUG PRODUCT: DARAPRIM
Active Ingredient: PYRIMETHAMINE
Strength: 25MG
Dosage Form/Route: TABLET;ORAL
Application: N008578 | Product #001 | TE Code: AB
Applicant: TILDE SCIENCES LLC
Approved: Approved Prior to Jan 1, 1982 | RLD: Yes | RS: Yes | Type: RX